FAERS Safety Report 6937375 (Version 5)
Quarter: 2012Q4

REPORT INFORMATION
  Report Type: 
  Country: US (occurrence: US)
  Receive Date: 20090313
  Receipt Date: 20121023
  Transmission Date: 20130627
  Serious: Yes (Death)
  Sender: FDA-Public Use
  Company Number: US-PFIZER INC-2009177648

PATIENT
  Age: 54 Year
  Sex: Male
  Weight: 83 kg

DRUGS (4)
  1. SUTENT [Suspect]
     Indication: BLADDER TRANSITIONAL CELL CARCINOMA
     Dosage: 50 mg, 1x/day
     Route: 048
     Dates: start: 20090130, end: 20090226
  2. LISINOPRIL W/HYDROCHLOROTHIAZIDE [Concomitant]
     Indication: HYPERTENSION
     Dosage: 20mg/25mg 1x/day, one tablet in the morning
     Route: 048
     Dates: start: 20090216
  3. LISINOPRIL [Concomitant]
     Indication: HYPERTENSION
     Dosage: 20 mg, 1x/day, one tablet in the evening
     Route: 048
     Dates: start: 20090216
  4. NORVASC [Concomitant]
     Indication: HYPERTENSION
     Dosage: 5 mg, 1x/day, one tablet daily
     Route: 048
     Dates: start: 20090213

REACTIONS (1)
  - Coronary artery disease [Fatal]
